FAERS Safety Report 13222779 (Version 1)
Quarter: 2017Q1

REPORT INFORMATION
  Report Type: Other
  Country: US (occurrence: US)
  Receive Date: 20170212
  Receipt Date: 20170212
  Transmission Date: 20170428
  Serious: No
  Sender: FDA-Public Use
  Company Number: US-ACORDA-ACO_122433_2016

PATIENT
  Sex: Female

DRUGS (1)
  1. AMPYRA [Suspect]
     Active Substance: DALFAMPRIDINE
     Indication: GAIT DISTURBANCE
     Dosage: 10 MG, Q 12 HRS
     Route: 048
     Dates: start: 20100529

REACTIONS (5)
  - Scab [Not Recovered/Not Resolved]
  - Feeling abnormal [Recovered/Resolved]
  - Burning sensation [Recovered/Resolved]
  - Lacrimation increased [Recovered/Resolved]
  - Dizziness [Recovered/Resolved]
